FAERS Safety Report 15955817 (Version 1)
Quarter: 2019Q1

REPORT INFORMATION
  Report Type: Spontaneous
  Country: US (occurrence: US)
  Receive Date: 20190212
  Receipt Date: 20190212
  Transmission Date: 20190417
  Serious: Yes (Disabling)
  Sender: FDA-Public Use
  Company Number: None

PATIENT
  Age: 65 Year
  Sex: Female
  Weight: 74.25 kg

DRUGS (2)
  1. CALCIUM [Concomitant]
     Active Substance: CALCIUM
  2. ESTRADIOL VAGINAL CREAM 0.01% [Suspect]
     Active Substance: ESTRADIOL
     Indication: VULVOVAGINAL DRYNESS
     Dosage: ?          QUANTITY:1 GRAM;OTHER FREQUENCY:2 TIMES A WEEK;?
     Route: 067
     Dates: start: 20190103, end: 20190208

REACTIONS (5)
  - Application site ulcer [None]
  - Application site vesicles [None]
  - Application site pain [None]
  - Insomnia [None]
  - Application site pruritus [None]

NARRATIVE: CASE EVENT DATE: 20190208
